FAERS Safety Report 9856802 (Version 2)
Quarter: 2014Q1

REPORT INFORMATION
  Report Type: Spontaneous
  Country: US (occurrence: US)
  Receive Date: 20140130
  Receipt Date: 20140312
  Transmission Date: 20141002
  Serious: Yes (Other)
  Sender: FDA-Public Use
  Company Number: US-UCBSA-110408

PATIENT
  Age: 37 Year
  Sex: Female
  Weight: 109.3 kg

DRUGS (5)
  1. CIMZIA [Suspect]
     Indication: RHEUMATOID ARTHRITIS
     Dosage: FIRST INDUCTION DOSE- 2 SAMPLES, 400 MG
     Dates: start: 20131220, end: 20131220
  2. ESCITALOPRAM [Concomitant]
     Indication: DEPRESSION
     Route: 048
  3. MTX [Concomitant]
     Indication: RHEUMATOID ARTHRITIS
     Route: 058
     Dates: start: 20130920
  4. FOLIC ACID [Concomitant]
     Dates: start: 20130920
  5. SYNTHROID [Concomitant]
     Route: 048

REACTIONS (1)
  - Anaphylactic reaction [Recovered/Resolved]
